FAERS Safety Report 6300384-3 (Version None)
Quarter: 2009Q3

REPORT INFORMATION
  Report Type: 
  Country: None (occurrence: None)
  Receive Date: 20090805
  Receipt Date: 20090724
  Transmission Date: 20100115
  Serious: Yes (Other)
  Sender: FDA-Public Use
  Company Number: AVE_00704_2009

PATIENT
  Age: 48 Year
  Sex: Male

DRUGS (1)
  1. NICOTINE [Suspect]
     Indication: SMOKING CESSATION THERAPY
     Dosage: (21 MG QD  TRANSDERMAL)
     Route: 062
     Dates: start: 20090716, end: 20090723

REACTIONS (6)
  - CONVULSION [None]
  - DISORIENTATION [None]
  - DIZZINESS POSTURAL [None]
  - PALLOR [None]
  - PRODUCT QUALITY ISSUE [None]
  - TREATMENT NONCOMPLIANCE [None]
